FAERS Safety Report 9015573 (Version 3)
Quarter: 2013Q3

REPORT INFORMATION
  Report Type: Report from Study
  Country: US (occurrence: US)
  Receive Date: 20130116
  Receipt Date: 20130701
  Transmission Date: 20140515
  Serious: Yes (Hospitalization)
  Sender: FDA-Public Use
  Company Number: US-JNJFOC-20130104178

PATIENT
  Age: 11 Year
  Sex: Male
  Weight: 28.3 kg

DRUGS (12)
  1. INFLIXIMAB, RECOMBINANT [Suspect]
     Indication: INFLAMMATORY BOWEL DISEASE
     Route: 042
  2. FERROUS SULFATE [Concomitant]
  3. MULTIVITAMINS [Concomitant]
  4. 5-ASA [Concomitant]
     Route: 048
  5. 6-MERCAPTOPURINE [Concomitant]
  6. HYOSCYAMINE [Concomitant]
  7. OMEPRAZOLE [Concomitant]
  8. CHOLECALCIFEROL [Concomitant]
  9. PREDNISONE [Concomitant]
  10. 5-ASA [Concomitant]
     Route: 054
  11. OMEGA 3 [Concomitant]
  12. HYDROCORTISONE [Concomitant]

REACTIONS (1)
  - Inflammatory bowel disease [Recovered/Resolved]
